FAERS Safety Report 6077593-4 (Version None)
Quarter: 2009Q1

REPORT INFORMATION
  Report Type: 
  Country: None (occurrence: None)
  Receive Date: 20090213
  Receipt Date: 20090206
  Transmission Date: 20090719
  Serious: Yes (Hospitalization, Other)
  Sender: FDA-Public Use
  Company Number: US-ELI_LILLY_AND_COMPANY-US200810001928

PATIENT
  Sex: Female
  Weight: 81.633 kg

DRUGS (12)
  1. BYETTA [Suspect]
     Dosage: 5 UG, 2/D
     Route: 058
     Dates: start: 20060822, end: 20060101
  2. BYETTA [Suspect]
     Dosage: 10 UG, 2/D
     Route: 058
     Dates: start: 20060101, end: 20071201
  3. BYETTA [Suspect]
     Dosage: UNK, UNKNOWN
     Dates: start: 20080325, end: 20080410
  4. GLUCOPHAGE [Concomitant]
  5. AMARYL [Concomitant]
  6. LISINOPRIL [Concomitant]
  7. LIPITOR [Concomitant]
  8. TRICOR [Concomitant]
  9. FUROSEMIDE [Concomitant]
     Dosage: UNK, UNK
  10. POTASSIUM CHLORIDE [Concomitant]
  11. PREVACID [Concomitant]
  12. TRINSICON [Concomitant]

REACTIONS (5)
  - ABDOMINAL HERNIA [None]
  - BLOOD UREA INCREASED [None]
  - HEPATIC STEATOSIS [None]
  - PANCREATITIS ACUTE [None]
  - PANCREATITIS CHRONIC [None]
